FAERS Safety Report 24835354 (Version 1)
Quarter: 2025Q1

REPORT INFORMATION
  Report Type: Spontaneous
  Country: FR (occurrence: FR)
  Receive Date: 20250113
  Receipt Date: 20250113
  Transmission Date: 20250408
  Serious: Yes (Life-Threatening, Hospitalization, Other)
  Sender: AUROBINDO
  Company Number: FR-AFSSAPS-TS2024001677

PATIENT
  Age: 34 Year
  Sex: Male
  Weight: 68.5 kg

DRUGS (4)
  1. LIDOCAINE [Suspect]
     Active Substance: LIDOCAINE
     Indication: Local anaesthesia
     Route: 065
     Dates: start: 20240315, end: 20240315
  2. VISIPAQUE [Suspect]
     Active Substance: IODIXANOL
     Indication: Angiocardiogram
     Route: 016
     Dates: start: 20240315, end: 20240315
  3. ISOSORBIDE DINITRATE [Suspect]
     Active Substance: ISOSORBIDE DINITRATE
     Indication: Angiocardiogram
     Route: 013
     Dates: start: 20240315, end: 20240315
  4. HEPARIN [Suspect]
     Active Substance: HEPARIN SODIUM
     Indication: Angiocardiogram
     Route: 013
     Dates: start: 20240315, end: 20240315

REACTIONS (2)
  - Anaphylactic shock [Recovered/Resolved]
  - Cardio-respiratory arrest [Recovered/Resolved]

NARRATIVE: CASE EVENT DATE: 20240315
